FAERS Safety Report 25771408 (Version 2)
Quarter: 2025Q3

REPORT INFORMATION
  Report Type: Report from Study
  Country: US (occurrence: US)
  Receive Date: 20250908
  Receipt Date: 20250918
  Transmission Date: 20251021
  Serious: Yes (Hospitalization, Other)
  Sender: GILEAD
  Company Number: US-GILEAD-2025-0726966

PATIENT
  Age: 15 Year
  Sex: Male

DRUGS (23)
  1. AZTREONAM LYSINE [Suspect]
     Active Substance: AZTREONAM LYSINE
     Indication: Cystic fibrosis lung
     Dosage: INHALE 1 VIAL VIA ALTERA NEBULIZER THREE TIMES A DAY CYCLE 28 DAYS ON AND 28 DAYS OFF
     Route: 055
  2. AZTREONAM LYSINE [Suspect]
     Active Substance: AZTREONAM LYSINE
     Dosage: INHALE 1 VIAL VIA ALTERA NEBULIZER THREE TIMES A DAY. RECONSTITUTE WITH A SINGLE 1 ML AMPULE OF SALI
     Route: 055
  3. VORICONAZOLE [Concomitant]
     Active Substance: VORICONAZOLE
  4. FLUTICASONE PROPIONATE\SALMETEROL XINAFOATE [Concomitant]
     Active Substance: FLUTICASONE PROPIONATE\SALMETEROL XINAFOATE
  5. CYPROHEPTADINE HYDROCHLORIDE [Concomitant]
     Active Substance: CYPROHEPTADINE HYDROCHLORIDE
  6. SODIUM CHLORIDE [Concomitant]
     Active Substance: SODIUM CHLORIDE
  7. SPIRIVA RESPIMAT [Concomitant]
     Active Substance: TIOTROPIUM BROMIDE
  8. FEXOFENADINE HYDROCHLORIDE [Concomitant]
     Active Substance: FEXOFENADINE HYDROCHLORIDE
  9. OMEPRAZOLE [Concomitant]
     Active Substance: OMEPRAZOLE
  10. VITAMIN D3 [Concomitant]
     Active Substance: CHOLECALCIFEROL
  11. BUDESONIDE [Concomitant]
     Active Substance: BUDESONIDE
  12. ALBUTEROL SULFATE [Concomitant]
     Active Substance: ALBUTEROL SULFATE
  13. POSACONAZOLE [Concomitant]
     Active Substance: POSACONAZOLE
  14. HYDROCORTISONE ACETATE [Concomitant]
     Active Substance: HYDROCORTISONE ACETATE
  15. ZENPEP [Concomitant]
     Active Substance: PANCRELIPASE AMYLASE\PANCRELIPASE LIPASE\PANCRELIPASE PROTEASE
  16. DULERA [Concomitant]
     Active Substance: FORMOTEROL FUMARATE DIHYDRATE\MOMETASONE FUROATE
  17. SINGULAIR [Concomitant]
     Active Substance: MONTELUKAST SODIUM
  18. TOBI PODHALER [Concomitant]
     Active Substance: TOBRAMYCIN
  19. PULMICORT TURBUHALER [Concomitant]
     Active Substance: BUDESONIDE
  20. AZITHROMYCIN [Concomitant]
     Active Substance: AZITHROMYCIN
  21. PROBIOTICS NOS [Concomitant]
     Active Substance: PROBIOTICS NOS
  22. VITAMINS NOS [Concomitant]
     Active Substance: VITAMINS
  23. CELEBREX [Concomitant]
     Active Substance: CELECOXIB

REACTIONS (6)
  - Staphylococcal infection [Unknown]
  - Pneumonia [Not Recovered/Not Resolved]
  - Pseudomonas infection [Unknown]
  - Drug hypersensitivity [Unknown]
  - Fungal infection [Unknown]
  - Parosmia [Unknown]

NARRATIVE: CASE EVENT DATE: 20250701
